FAERS Safety Report 5071416-8 (Version None)
Quarter: 2006Q3

REPORT INFORMATION
  Report Type: 
  Country: None (occurrence: None)
  Receive Date: 20060803
  Receipt Date: 20060803
  Transmission Date: 20061208
  Serious: No
  Sender: FDA-Public Use
  Company Number: None

PATIENT
  Age: 40 Year
  Sex: Female

DRUGS (7)
  1. PYRAZINAMIDE [Suspect]
     Dates: start: 20050901, end: 20060117
  2. INH [Concomitant]
  3. RIFAMPIN [Concomitant]
  4. ETHAMBUTOL HYDROCHLORIDE [Concomitant]
  5. AVELOX [Concomitant]
  6. LEVAQUIN [Concomitant]
  7. CIPRO [Concomitant]

REACTIONS (13)
  - ABDOMINAL PAIN UPPER [None]
  - ALANINE AMINOTRANSFERASE INCREASED [None]
  - ARTHRALGIA [None]
  - ASPARTATE AMINOTRANSFERASE INCREASED [None]
  - BLOOD BILIRUBIN INCREASED [None]
  - DRUG RESISTANCE [None]
  - FATIGUE [None]
  - HEPATIC TRAUMA [None]
  - HEPATOTOXICITY [None]
  - JAUNDICE [None]
  - MYALGIA [None]
  - OCULAR ICTERUS [None]
  - URINARY TRACT INFECTION [None]
